FAERS Safety Report 16007023 (Version 2)
Quarter: 2019Q2

REPORT INFORMATION
  Report Type: Spontaneous
  Country: DE (occurrence: DE)
  Receive Date: 20190226
  Receipt Date: 20190404
  Transmission Date: 20190711
  Serious: No
  Sender: FDA-Public Use
  Company Number: DE-INCYTE CORPORATION-2019IN001443

PATIENT

DRUGS (5)
  1. JAKAVI [Suspect]
     Active Substance: RUXOLITINIB
     Indication: POLYCYTHAEMIA VERA
     Dosage: 10 MG, BID (10 MG -0-10 MG)
     Route: 065
     Dates: start: 201701, end: 20170421
  2. JAKAVI [Suspect]
     Active Substance: RUXOLITINIB
     Dosage: 25 MG, QD (10 MG -0 -15 MG)
     Route: 065
     Dates: start: 20170421, end: 20170723
  3. JAKAVI [Suspect]
     Active Substance: RUXOLITINIB
     Dosage: 15 MG, BID (1-0-1)
     Route: 065
     Dates: start: 20170723
  4. VALSACOR [Concomitant]
     Active Substance: VALSARTAN
     Indication: HYPERTENSION
     Dosage: 1-0-1
     Route: 065
  5. ASPIRIN. [Concomitant]
     Active Substance: ASPIRIN
     Indication: PRODUCT USED FOR UNKNOWN INDICATION
     Dosage: 0-1-0
     Route: 065

REACTIONS (15)
  - Blood glucose increased [Unknown]
  - Haemoglobin decreased [Unknown]
  - Red blood cell count decreased [Unknown]
  - Glomerular filtration rate decreased [Unknown]
  - High density lipoprotein increased [Unknown]
  - Nausea [Unknown]
  - Non-high-density lipoprotein cholesterol increased [Unknown]
  - Haematocrit decreased [Unknown]
  - Hyperlipidaemia [Unknown]
  - Glycosylated haemoglobin increased [Unknown]
  - Blood triglycerides decreased [Unknown]
  - Blood lactate dehydrogenase increased [Unknown]
  - Low density lipoprotein increased [Unknown]
  - Blood potassium increased [Unknown]
  - Platelet count increased [Unknown]

NARRATIVE: CASE EVENT DATE: 20170303
